FAERS Safety Report 9913733 (Version 1)
Quarter: 2014Q1

REPORT INFORMATION
  Report Type: Spontaneous
  Country: HU (occurrence: HU)
  Receive Date: 20140220
  Receipt Date: 20140220
  Transmission Date: 20141002
  Serious: Yes (Hospitalization, Other)
  Sender: FDA-Public Use
  Company Number: HU-AMGEN-HUNSP2014011442

PATIENT
  Age: 73 Year
  Sex: Female

DRUGS (2)
  1. PROLIA [Suspect]
     Indication: OSTEOPOROSIS
     Dosage: UNK
     Route: 065
  2. ROACTEMRA [Concomitant]
     Indication: RHEUMATOID ARTHRITIS
     Dosage: UNK
     Dates: start: 2012

REACTIONS (3)
  - Infection [Unknown]
  - Localised oedema [Recovering/Resolving]
  - Cardiovascular disorder [Unknown]
